FAERS Safety Report 7984050-4 (Version None)
Quarter: 2011Q4

REPORT INFORMATION
  Report Type: 
  Country: None (occurrence: None)
  Receive Date: 20111216
  Receipt Date: 20111213
  Transmission Date: 20120403
  Serious: Yes (Hospitalization, Other)
  Sender: FDA-Public Use
  Company Number: SE-PFIZER INC-K201100605

PATIENT
  Age: 56 Year
  Sex: Male

DRUGS (7)
  1. METOPROLOL [Concomitant]
     Dosage: 50 MG, UNK
  2. ALTACE [Suspect]
     Indication: CARDIAC FAILURE
     Dosage: 10 MG, 1X/DAY
     Route: 048
     Dates: start: 20070101, end: 20110121
  3. NITROFURANTOIN [Suspect]
     Indication: URINARY TRACT INFECTION
     Dosage: UNK, ORAL
     Route: 048
     Dates: start: 20101215, end: 20110111
  4. ASPIRIN [Concomitant]
     Dosage: 75 MG, UNK
  5. GLYCERYL TRINITRATE [Concomitant]
     Dosage: 0.4 MG, UNK
  6. OMEPRAZOLE [Concomitant]
     Dosage: 20 MG, UNK
  7. THERAPEUTIC RADIOPHARMACEUTICALS [Concomitant]

REACTIONS (5)
  - THROAT TIGHTNESS [None]
  - LARYNGEAL OEDEMA [None]
  - DYSPNOEA [None]
  - TONSIL CANCER [None]
  - URINARY TRACT INFECTION [None]
